FAERS Safety Report 12294786 (Version 1)
Quarter: 2016Q2

REPORT INFORMATION
  Report Type: Spontaneous
  Country: US (occurrence: US)
  Receive Date: 20160422
  Receipt Date: 20160422
  Transmission Date: 20160815
  Serious: No
  Sender: FDA-Public Use
  Company Number: US-PFIZER INC-2016213948

PATIENT

DRUGS (2)
  1. FEMARA [Concomitant]
     Active Substance: LETROZOLE
     Dosage: UNK
  2. IBRANCE [Suspect]
     Active Substance: PALBOCICLIB
     Dosage: 125 MG, CYCLIC (ENTERING THE 6TH CYCLE)

REACTIONS (4)
  - Asthenia [Unknown]
  - Rhinorrhoea [Unknown]
  - Alopecia [Unknown]
  - Fatigue [Unknown]
